FAERS Safety Report 8345435-X (Version None)
Quarter: 2012Q2

REPORT INFORMATION
  Report Type: 
  Country: None (occurrence: None)
  Receive Date: 20120508
  Receipt Date: 20120430
  Transmission Date: 20120825
  Serious: No
  Sender: FDA-Public Use
  Company Number: US-US-EMD SERONO, INC.-7119534

PATIENT
  Sex: Male

DRUGS (1)
  1. EGRIFTA [Suspect]
     Indication: LIPODYSTROPHY ACQUIRED
     Dates: start: 20120222, end: 20120301

REACTIONS (4)
  - CARPAL TUNNEL SYNDROME [None]
  - ABDOMINAL PAIN [None]
  - DIARRHOEA [None]
  - MUSCULOSKELETAL PAIN [None]
